FAERS Safety Report 16802434 (Version 1)
Quarter: 2019Q3

REPORT INFORMATION
  Report Type: Spontaneous
  Country: US (occurrence: US)
  Receive Date: 20190912
  Receipt Date: 20190912
  Transmission Date: 20191005
  Serious: Yes (Other)
  Sender: FDA-Public Use
  Company Number: US-COLLEGIUM PHARMACEUTICAL, INC.-2019CGM00215

PATIENT
  Age: 60 Year
  Sex: Male
  Weight: 90.7 kg

DRUGS (1)
  1. XTAMPZA ER [Suspect]
     Active Substance: OXYCODONE
     Indication: POST LAMINECTOMY SYNDROME
     Dosage: 18 MG, EVERY 12 HOURS
     Route: 048
     Dates: start: 20190321, end: 20190529

REACTIONS (3)
  - Hallucination [Recovered/Resolved]
  - Gastrostomy [Unknown]
  - Dysphagia [Unknown]

NARRATIVE: CASE EVENT DATE: 2019
